FAERS Safety Report 7199386-7 (Version None)
Quarter: 2010Q4

REPORT INFORMATION
  Report Type: 
  Country: None (occurrence: None)
  Receive Date: 20101223
  Receipt Date: 20101223
  Transmission Date: 20110411
  Serious: No
  Sender: FDA-Public Use
  Company Number: None

PATIENT
  Age: 46 Year
  Sex: Male
  Weight: 94 kg

DRUGS (2)
  1. TOPIRAMATE [Suspect]
     Indication: PAIN
     Dosage: 100 MG BID PO
     Route: 048
     Dates: start: 20100718, end: 20100805
  2. TOPIRAMATE [Suspect]
     Dosage: 50 MG OTHER PO
     Route: 048
     Dates: start: 20100715, end: 20100718

REACTIONS (3)
  - ERYTHEMA MULTIFORME [None]
  - RASH PRURITIC [None]
  - SOMNOLENCE [None]
